FAERS Safety Report 13160108 (Version 4)
Quarter: 2017Q1

REPORT INFORMATION
  Report Type: Spontaneous
  Country: TW (occurrence: TW)
  Receive Date: 20170127
  Receipt Date: 20170203
  Transmission Date: 20170428
  Serious: Yes (Disabling, Other)
  Sender: FDA-Public Use
  Company Number: TW-GILEAD-2017-0254290

PATIENT
  Age: 43 Year
  Sex: Male
  Weight: 50 kg

DRUGS (11)
  1. WELLBUTRIN [Concomitant]
     Active Substance: BUPROPION HYDROCHLORIDE
     Indication: INSOMNIA
     Dosage: DOSAGE FORM: UNSPECIFIED, IN THE MORNING AND IN THE NIGHT
     Route: 065
  2. ZOPICLONE [Concomitant]
     Active Substance: ZOPICLONE
     Indication: INSOMNIA
     Route: 065
  3. LORAZEPAM. [Concomitant]
     Active Substance: LORAZEPAM
     Indication: DEPRESSION
     Dosage: DOSAGE FORM: UNSPECIFIED, IN THE MORNING AND IN THE NIGHT
     Route: 065
  4. WELLBUTRIN [Concomitant]
     Active Substance: BUPROPION HYDROCHLORIDE
     Indication: DEPRESSION
     Dosage: DOSAGE FORM: UNSPECIFIED, IN THE MORNING AND IN THE NIGHT
     Route: 065
  5. ZOPICLONE [Concomitant]
     Active Substance: ZOPICLONE
     Indication: DEPRESSION
     Route: 065
  6. MESYREL [Concomitant]
     Active Substance: TRAZODONE HYDROCHLORIDE
     Indication: INSOMNIA
     Dosage: DOSAGE FORM: UNSPECIFIED, IN THE MORNING AND IN THE NIGHT
     Route: 065
  7. COMPLERA [Suspect]
     Active Substance: EMTRICITABINE\RILPIVIRINE HYDROCHLORIDE\TENOFOVIR DISOPROXIL FUMARATE
     Indication: HIV INFECTION
     Dosage: UNK UNK, QD
     Route: 048
     Dates: start: 20160701, end: 20161231
  8. MODIPANOL [Concomitant]
     Indication: DEPRESSION
     Dosage: DOSAGE FORM: UNSPECIFIED, IN THE MORNING AND IN THE NIGHT
     Route: 065
  9. MODIPANOL [Concomitant]
     Indication: INSOMNIA
     Dosage: DOSAGE FORM: UNSPECIFIED, IN THE MORNING AND IN THE NIGHT
     Route: 065
  10. LORAZEPAM. [Concomitant]
     Active Substance: LORAZEPAM
     Indication: INSOMNIA
     Dosage: DOSAGE FORM: UNSPECIFIED, IN THE MORNING AND IN THE NIGHT
     Route: 065
  11. MESYREL [Concomitant]
     Active Substance: TRAZODONE HYDROCHLORIDE
     Indication: DEPRESSION
     Dosage: DOSAGE FORM: UNSPECIFIED, IN THE MORNING AND IN THE NIGHT
     Route: 065

REACTIONS (2)
  - Rash [Recovered/Resolved]
  - Alopecia [Recovered/Resolved]

NARRATIVE: CASE EVENT DATE: 20160701
